FAERS Safety Report 7956468-7 (Version None)
Quarter: 2011Q4

REPORT INFORMATION
  Report Type: 
  Country: None (occurrence: None)
  Receive Date: 20111205
  Receipt Date: 20111130
  Transmission Date: 20120403
  Serious: Yes (Death, Hospitalization, Other)
  Sender: FDA-Public Use
  Company Number: US-ASTELLAS-2011US007568

PATIENT
  Sex: Female

DRUGS (1)
  1. ERLOTINIB HYDROCHLORIDE [Suspect]
     Indication: PANCREATIC CARCINOMA
     Dosage: 100 MG, UID/QD
     Route: 048
     Dates: start: 20111001

REACTIONS (7)
  - CARDIAC ENZYMES INCREASED [None]
  - PANCREATIC CARCINOMA METASTATIC [None]
  - NAUSEA [None]
  - BLOOD GLUCOSE DECREASED [None]
  - VOMITING [None]
  - CARDIAC ARREST [None]
  - HAEMORRHAGE [None]
